FAERS Safety Report 9739160 (Version 1)
Quarter: 2013Q4

REPORT INFORMATION
  Report Type: Spontaneous
  Country: JP (occurrence: JP)
  Receive Date: 20131209
  Receipt Date: 20131209
  Transmission Date: 20140711
  Serious: Yes (Other)
  Sender: FDA-Public Use
  Company Number: JP-ASTELLAS-2013JP013440

PATIENT
  Sex: 0

DRUGS (3)
  1. PROGRAF [Suspect]
     Indication: BONE MARROW TRANSPLANT
     Dosage: 0.8 MG, UNKNOWN/D
     Route: 048
  2. PROGRAF [Suspect]
     Dosage: 0.8 MG, UNKNOWN/D
     Route: 048
  3. CORTICOSTEROID NOS [Concomitant]
     Route: 048

REACTIONS (3)
  - Intentional drug misuse [Unknown]
  - Drug ineffective [Unknown]
  - Graft versus host disease [Unknown]
